FAERS Safety Report 14913686 (Version 2)
Quarter: 2018Q2

REPORT INFORMATION
  Report Type: Spontaneous
  Country: BE (occurrence: BE)
  Receive Date: 20180518
  Receipt Date: 20180524
  Transmission Date: 20180711
  Serious: Yes (Hospitalization)
  Sender: FDA-Public Use
  Company Number: BE-CELLTRION INC.-2018BE019691

PATIENT

DRUGS (4)
  1. REMSIMA [Suspect]
     Active Substance: INFLIXIMAB
     Dosage: 375 MG
     Route: 042
     Dates: start: 20180223, end: 20180223
  2. REMSIMA [Suspect]
     Active Substance: INFLIXIMAB
     Indication: COLITIS ULCERATIVE
     Dosage: 375 MG
     Route: 042
     Dates: start: 20180223, end: 20180223
  3. REMSIMA [Suspect]
     Active Substance: INFLIXIMAB
     Dosage: 375 MG
     Route: 042
     Dates: start: 20180223, end: 20180223
  4. IMURAN [Concomitant]
     Active Substance: AZATHIOPRINE
     Dosage: 50 MG, BID
     Dates: end: 20180223

REACTIONS (1)
  - Crohn^s disease [Unknown]

NARRATIVE: CASE EVENT DATE: 20180425
